APPROVED DRUG PRODUCT: HYDROCODONE BITARTRATE AND ACETAMINOPHEN
Active Ingredient: ACETAMINOPHEN; HYDROCODONE BITARTRATE
Strength: 325MG;7.5MG
Dosage Form/Route: TABLET;ORAL
Application: A206484 | Product #002
Applicant: UPSHER SMITH LABORATORIES LLC
Approved: Mar 24, 2017 | RLD: No | RS: No | Type: DISCN